FAERS Safety Report 8002561-2 (Version None)
Quarter: 2011Q4

REPORT INFORMATION
  Report Type: 
  Country: None (occurrence: None)
  Receive Date: 20111220
  Receipt Date: 20111205
  Transmission Date: 20120403
  Serious: Yes (Hospitalization, Other)
  Sender: FDA-Public Use
  Company Number: FK201102894

PATIENT
  Age: 52 Year
  Sex: Female

DRUGS (4)
  1. EXEMESTANE [Concomitant]
  2. FULVESTRANT (FULVESTRANT) [Concomitant]
  3. LAPATINIB (LAPATINIB) [Concomitant]
  4. PAMIDRONATE DISODIUM [Suspect]
     Indication: DRUG THERAPY
     Dosage: 41 DOSES, INTRAVENOUS (NOT OTHERWISE SPECIFIED)
     Route: 042

REACTIONS (2)
  - FEMUR FRACTURE [None]
  - OSTEONECROSIS OF JAW [None]
